FAERS Safety Report 4786996-7 (Version None)
Quarter: 2005Q4

REPORT INFORMATION
  Report Type: 
  Country: None (occurrence: None)
  Receive Date: 20051004
  Receipt Date: 20050927
  Transmission Date: 20060501
  Serious: Yes (Hospitalization, Other)
  Sender: FDA-Public Use
  Company Number: GB-GLAXOSMITHKLINE-B0395292A

PATIENT
  Age: 90 Year
  Sex: Female
  Weight: 56 kg

DRUGS (7)
  1. AMOXICILLIN [Suspect]
     Dosage: 1000MG PER DAY
     Route: 048
     Dates: start: 20050822, end: 20050823
  2. CLARITHROMYCIN [Suspect]
     Dosage: 1000MG PER DAY
     Route: 048
     Dates: start: 20050822, end: 20050823
  3. ASPIRIN [Concomitant]
     Indication: ANGIOPATHY
     Dosage: 75MG PER DAY
     Route: 048
     Dates: start: 20030801, end: 20050816
  4. FUROSEMIDE [Concomitant]
     Dosage: 40MG PER DAY
     Route: 048
  5. LACTULOSE [Concomitant]
     Indication: CONSTIPATION
     Dosage: 10ML PER DAY
     Route: 048
  6. TERBUTALINE [Concomitant]
  7. BECLOMETHASONE DIPROPIONATE [Concomitant]

REACTIONS (2)
  - PRURITUS [None]
  - URTICARIA [None]
